FAERS Safety Report 6904192-1 (Version None)
Quarter: 2010Q3

REPORT INFORMATION
  Report Type: 
  Country: None (occurrence: None)
  Receive Date: 20100804
  Receipt Date: 20090403
  Transmission Date: 20110219
  Serious: Yes (Other)
  Sender: FDA-Public Use
  Company Number: US-PFIZER INC-2008089033

PATIENT
  Sex: Male
  Weight: 89.796 kg

DRUGS (7)
  1. LYRICA [Suspect]
     Indication: FIBROMYALGIA
     Dates: start: 20080101
  2. OMEPRAZOLE [Concomitant]
  3. DRUG, UNSPECIFIED [Concomitant]
  4. SIMVASTATIN [Concomitant]
  5. ACETYLSALICYLIC ACID SRT [Concomitant]
  6. DRUG, UNSPECIFIED [Concomitant]
  7. TRAMADOL HYDROCHLORIDE [Concomitant]
     Indication: PAIN

REACTIONS (9)
  - DISTURBANCE IN ATTENTION [None]
  - DRUG INEFFECTIVE [None]
  - FATIGUE [None]
  - FIBROMYALGIA [None]
  - INSOMNIA [None]
  - LOSS OF CONSCIOUSNESS [None]
  - MEMORY IMPAIRMENT [None]
  - OVERDOSE [None]
  - PAIN [None]
